FAERS Safety Report 5030792-2 (Version None)
Quarter: 2006Q2

REPORT INFORMATION
  Report Type: 
  Country: None (occurrence: None)
  Receive Date: 20060614
  Receipt Date: 20060605
  Transmission Date: 20061013
  Serious: Yes (Life-Threatening, Hospitalization)
  Sender: FDA-Public Use
  Company Number: 200610286BFR

PATIENT
  Age: 59 Year
  Sex: Male
  Weight: 70.6 kg

DRUGS (15)
  1. SORAFENIB [Suspect]
     Indication: METASTATIC RENAL CELL CARCINOMA
     Dosage: SEE IMAGE
     Route: 048
     Dates: start: 20040223, end: 20040406
  2. SORAFENIB [Suspect]
     Dates: start: 20040406, end: 20040518
  3. SORAFENIB [Suspect]
     Dates: start: 20040518, end: 20040701
  4. SORAFENIB [Suspect]
     Dates: start: 20040715
  5. SORAFENIB [Suspect]
     Dates: start: 20050526
  6. SORAFENIB [Suspect]
     Dates: start: 20060119, end: 20060327
  7. MONO-TILDIEM [Concomitant]
  8. LASILIX [Concomitant]
  9. APROVEL [Concomitant]
  10. BIAFINE [Concomitant]
  11. CETAVLON [Concomitant]
  12. DEXERYL [GLYCEROL, PARAFFIN, LIQUID, WHITE SOFT PARAFFIN] [Concomitant]
  13. IMODIUM [Concomitant]
  14. TIORFAN [Concomitant]
  15. NEXIUM [Concomitant]

REACTIONS (13)
  - ANAEMIA [None]
  - APLASIA PURE RED CELL [None]
  - ARTERIOSCLEROSIS CORONARY ARTERY [None]
  - BLOOD PRESSURE INCREASED [None]
  - CORONARY ARTERY STENOSIS [None]
  - DUODENITIS [None]
  - GASTROINTESTINAL HAEMORRHAGE [None]
  - HYPERTENSION [None]
  - INFUSION SITE PHLEBITIS [None]
  - MYOCARDIAL INFARCTION [None]
  - MYOCARDIAL ISCHAEMIA [None]
  - OESOPHAGITIS [None]
  - REFUSAL OF TREATMENT BY PATIENT [None]
